FAERS Safety Report 6827460-0 (Version None)
Quarter: 2010Q3

REPORT INFORMATION
  Report Type: 
  Country: None (occurrence: None)
  Receive Date: 20100709
  Receipt Date: 20100702
  Transmission Date: 20110219
  Serious: Yes (Other)
  Sender: FDA-Public Use
  Company Number: US-B.I. PHARMACEUTICALS,INC./RIDGEFIELD-2010-BP-07516BP

PATIENT
  Age: 26 Year

DRUGS (1)
  1. MOBIC [Suspect]
     Dates: start: 20060101, end: 20090101

REACTIONS (5)
  - ANKYLOSING SPONDYLITIS [None]
  - HEPATIC STEATOSIS [None]
  - LIVER DISORDER [None]
  - RECTAL HAEMORRHAGE [None]
  - ULCER [None]
